FAERS Safety Report 6204439-3 (Version None)
Quarter: 2009Q2

REPORT INFORMATION
  Report Type: 
  Country: None (occurrence: None)
  Receive Date: 20090527
  Receipt Date: 20090516
  Transmission Date: 20091009
  Serious: Yes (Hospitalization)
  Sender: FDA-Public Use
  Company Number: US-PFIZER INC-2009201282

PATIENT
  Sex: Female
  Weight: 110.66 kg

DRUGS (13)
  1. NAPROXEN [Suspect]
     Indication: OSTEOARTHRITIS
     Dosage: UNK
     Route: 048
     Dates: start: 20090227
  2. BLINDED *PLACEBO [Suspect]
     Indication: OSTEOARTHRITIS
     Dosage: UNK
     Route: 048
     Dates: start: 20090227
  3. BLINDED CELECOXIB [Suspect]
     Indication: OSTEOARTHRITIS
     Dosage: UNK
     Route: 048
     Dates: start: 20090227
  4. IBUPROFEN [Suspect]
     Indication: OSTEOARTHRITIS
     Dosage: UNK
     Route: 048
     Dates: start: 20090227
  5. NAPROXEN [Suspect]
     Dosage: UNK
     Route: 048
     Dates: start: 20090227
  6. ACETYLSALICYLIC ACID [Concomitant]
     Dosage: UNK
     Route: 048
     Dates: start: 20070101
  7. GLIPIZIDE [Concomitant]
     Dosage: UNK
     Route: 048
     Dates: start: 20070101
  8. METFORMIN [Concomitant]
     Dosage: UNK
     Route: 048
     Dates: start: 20070101
  9. FEXOFENADINE HYDROCHLORIDE [Concomitant]
     Dosage: UNK
     Route: 048
     Dates: start: 20070101
  10. MONTELUKAST SODIUM [Concomitant]
     Dosage: UNK
     Route: 048
     Dates: start: 20070101
  11. XOPENEX [Concomitant]
     Dosage: UNK
     Dates: start: 20070101
  12. SPIRIVA [Concomitant]
     Dosage: UNK
     Route: 055
     Dates: start: 20070101
  13. LISINOPRIL [Concomitant]
     Dosage: UNK
     Route: 048
     Dates: start: 20070101

REACTIONS (1)
  - LOCALISED INTRAABDOMINAL FLUID COLLECTION [None]
